FAERS Safety Report 6626467-6 (Version None)
Quarter: 2010Q1

REPORT INFORMATION
  Report Type: 
  Country: None (occurrence: None)
  Receive Date: 20100310
  Receipt Date: 20100301
  Transmission Date: 20100710
  Serious: Yes (Other)
  Sender: FDA-Public Use
  Company Number: US-GENENTECH-298907

PATIENT

DRUGS (3)
  1. RITUXIMAB [Suspect]
     Indication: WALDENSTROM'S MACROGLOBULINAEMIA
     Dosage: 375 MG/M2, UNK
     Route: 042
  2. CYCLOPHOSPHAMIDE [Suspect]
     Indication: WALDENSTROM'S MACROGLOBULINAEMIA
     Dosage: 1000 MG/M2, UNK
     Route: 042
  3. PREDNISONE [Suspect]
     Indication: WALDENSTROM'S MACROGLOBULINAEMIA
     Dosage: 100 MG, UNK
     Route: 048

REACTIONS (1)
  - BLOOD IMMUNOGLOBULIN M INCREASED [None]
